FAERS Safety Report 24605980 (Version 3)
Quarter: 2025Q2

REPORT INFORMATION
  Report Type: Spontaneous
  Country: JP (occurrence: JP)
  Receive Date: 20241111
  Receipt Date: 20250520
  Transmission Date: 20250716
  Serious: Yes (Other)
  Sender: SANOFI AVENTIS
  Company Number: JP-SA-2024SA323557

PATIENT
  Age: 35 Year
  Sex: Male

DRUGS (4)
  1. DUPIXENT [Suspect]
     Active Substance: DUPILUMAB
     Indication: Dermatitis atopic
     Dosage: 300 MG, QOW
     Route: 058
     Dates: start: 20191120
  2. DUPIXENT [Suspect]
     Active Substance: DUPILUMAB
     Dosage: 300 MG, Q3W
     Route: 058
  3. NIPOLAZIN [Concomitant]
     Indication: Pruritus allergic
     Dosage: 3 MG, HS
     Route: 048
     Dates: start: 20201105
  4. ALLELOCK [Concomitant]
     Active Substance: OLOPATADINE HYDROCHLORIDE
     Indication: Pruritus allergic
     Dosage: 5 MG, BID, IN THE MORNING AND EVENING
     Route: 048
     Dates: start: 20200110, end: 20250313

REACTIONS (3)
  - Arrhythmia [Recovering/Resolving]
  - Arrhythmogenic right ventricular dysplasia [Recovering/Resolving]
  - Off label use [Unknown]

NARRATIVE: CASE EVENT DATE: 20230520
